FAERS Safety Report 6249885-7 (Version None)
Quarter: 2009Q2

REPORT INFORMATION
  Report Type: 
  Country: None (occurrence: None)
  Receive Date: 20090629
  Receipt Date: 20090617
  Transmission Date: 20091009
  Serious: Yes (Other)
  Sender: FDA-Public Use
  Company Number: FR-SANOFI-SYNTHELABO-A02200901569

PATIENT
  Age: 67 Year
  Sex: Female

DRUGS (2)
  1. MYTELASE [Suspect]
     Indication: MUSCULAR WEAKNESS
     Dosage: UNK
     Route: 048
     Dates: start: 19940101, end: 20090101
  2. MESTINON [Concomitant]
     Dosage: UNKNOWN
     Route: 048

REACTIONS (3)
  - DYSKINESIA [None]
  - DYSPHAGIA [None]
  - PRODUCT QUALITY ISSUE [None]
